FAERS Safety Report 4445232-1 (Version None)
Quarter: 2004Q3

REPORT INFORMATION
  Report Type: 
  Country: None (occurrence: None)
  Receive Date: 20040902
  Receipt Date: 20040823
  Transmission Date: 20050211
  Serious: No
  Sender: FDA-Public Use
  Company Number: 04H-163-0271556-00

PATIENT
  Sex: 0

DRUGS (7)
  1. SUCCINYLCHOLINE CHLORIDE [Suspect]
     Indication: INDUCTION OF ANAESTHESIA
     Dosage: 1 MG/KG, INTRAVENOUS
     Route: 042
  2. SUFENTANIL [Suspect]
     Indication: INDUCTION OF ANAESTHESIA
     Dosage: 1 MCG/KG, INTRAVENOUS
     Route: 042
  3. MORPHINE SULFATE [Concomitant]
  4. OXYGEN [Concomitant]
  5. INTRAVENOUS  FLUIDS [Concomitant]
  6. ENFLURANE [Concomitant]
  7. LORAZEPAM [Concomitant]

REACTIONS (2)
  - MYOCARDIAL ISCHAEMIA [None]
  - POST PROCEDURAL COMPLICATION [None]
